FAERS Safety Report 13503618 (Version 1)
Quarter: 2017Q2

REPORT INFORMATION
  Report Type: Spontaneous
  Country: US (occurrence: US)
  Receive Date: 20170502
  Receipt Date: 20170502
  Transmission Date: 20170830
  Serious: Yes (Other)
  Sender: FDA-Public Use
  Company Number: US-SA-2017SA075515

PATIENT
  Age: 55 Year
  Sex: Female

DRUGS (2)
  1. LANTUS SOLOSTAR [Suspect]
     Active Substance: INSULIN GLARGINE
     Indication: TYPE 2 DIABETES MELLITUS
     Dosage: IF SHE IS UNDER 200 SHE TAKES 35 UNITS PER DAY AND IF SHE IS?OVER 200^S SHE TAKES 40 UNITS PER DAY
     Route: 065
  2. SOLOSTAR [Suspect]
     Active Substance: DEVICE
     Indication: TYPE 2 DIABETES MELLITUS

REACTIONS (8)
  - Device issue [Unknown]
  - Wrong technique in product usage process [Unknown]
  - Renal disorder [Unknown]
  - Visual acuity reduced [Unknown]
  - Intentional product misuse [Unknown]
  - Fluid retention [Unknown]
  - Blood glucose increased [Unknown]
  - Peripheral swelling [Unknown]
